FAERS Safety Report 19032853 (Version 1)
Quarter: 2021Q1

REPORT INFORMATION
  Report Type: Spontaneous
  Country: US (occurrence: US)
  Receive Date: 20210319
  Receipt Date: 20210319
  Transmission Date: 20210420
  Serious: No
  Sender: FDA-Public Use
  Company Number: US-THERAPEUTICSMD-2020TMD05550

PATIENT
  Age: 58 Year
  Sex: Female

DRUGS (4)
  1. IMVEXXY [Suspect]
     Active Substance: ESTRADIOL
     Dosage: UNK, ALTERNATING WITH ESTRACE (ESTRADIOL) 0.01% CREAM
     Route: 067
     Dates: start: 2020
  2. ESTRACE [Suspect]
     Active Substance: ESTRADIOL
     Dosage: UNK
     Dates: end: 202009
  3. ESTRACE [Suspect]
     Active Substance: ESTRADIOL
     Dosage: UNK,  ALTERNATING WITH IMVEXXY
     Dates: start: 2020
  4. IMVEXXY [Suspect]
     Active Substance: ESTRADIOL
     Dosage: 10 ?G
     Route: 067
     Dates: start: 202009, end: 2020

REACTIONS (6)
  - Vulvovaginal discomfort [Unknown]
  - Product administration error [Unknown]
  - Vulvovaginal dryness [Unknown]
  - Feeling abnormal [Unknown]
  - Urinary tract infection [Unknown]
  - Vaginal discharge [Not Recovered/Not Resolved]

NARRATIVE: CASE EVENT DATE: 2020
